FAERS Safety Report 4639016-9 (Version None)
Quarter: 2005Q2

REPORT INFORMATION
  Report Type: 
  Country: None (occurrence: None)
  Receive Date: 20050419
  Receipt Date: 20050415
  Transmission Date: 20051028
  Serious: Yes (Death)
  Sender: FDA-Public Use
  Company Number: PHBS2005KP05384

PATIENT
  Age: 36 Year
  Sex: Female

DRUGS (1)
  1. GLEEVEC [Suspect]
     Indication: ACUTE LYMPHOCYTIC LEUKAEMIA
     Dosage: 400-600 MG/D
     Route: 065

REACTIONS (1)
  - CEREBRAL HAEMORRHAGE [None]
